FAERS Safety Report 10800245 (Version 2)
Quarter: 2015Q1

REPORT INFORMATION
  Report Type: Report from Study
  Country: BR (occurrence: BR)
  Receive Date: 20150216
  Receipt Date: 20150302
  Transmission Date: 20150721
  Serious: Yes (Other)
  Sender: FDA-Public Use
  Company Number: PHHY2015BR018264

PATIENT
  Age: 67 Year
  Sex: Female
  Weight: 68 kg

DRUGS (3)
  1. MIOCALVEN D [Concomitant]
     Indication: BLOOD CALCIUM ABNORMAL
     Dosage: 1 DF, QD
     Route: 048
  2. CODATEN [Concomitant]
     Active Substance: CODEINE PHOSPHATE\DICLOFENAC SODIUM
     Indication: PAIN
     Dosage: 50 MG/50MG (UNTIL 3 PER DAY)
     Route: 048
     Dates: start: 2012
  3. ACLASTA [Suspect]
     Active Substance: ZOLEDRONIC ACID
     Indication: OSTEOPOROSIS
     Dosage: 5 MG, ONCE A YEAR
     Route: 042
     Dates: start: 20130604

REACTIONS (10)
  - Spinal osteoarthritis [Unknown]
  - Infusion site haematoma [Unknown]
  - Rash macular [Not Recovered/Not Resolved]
  - Vertebral osteophyte [Unknown]
  - Intervertebral disc space narrowing [Recovering/Resolving]
  - Lumbar vertebral fracture [Recovering/Resolving]
  - Intervertebral disc disorder [Unknown]
  - Spinal deformity [Not Recovered/Not Resolved]
  - Intervertebral disc protrusion [Unknown]
  - Spondylolisthesis [Unknown]

NARRATIVE: CASE EVENT DATE: 2013
